FAERS Safety Report 4519936-6 (Version None)
Quarter: 2004Q4

REPORT INFORMATION
  Report Type: 
  Country: None (occurrence: None)
  Receive Date: 20041207
  Receipt Date: 20041126
  Transmission Date: 20050328
  Serious: Yes (Hospitalization)
  Sender: FDA-Public Use
  Company Number: FR-ROCHE-387318

PATIENT
  Age: 63 Year
  Sex: Female
  Weight: 65 kg

DRUGS (2)
  1. XELODA [Suspect]
     Route: 048
     Dates: start: 20040426, end: 20040723
  2. ZOMETA [Concomitant]
     Indication: DRUG USE FOR UNKNOWN INDICATION
     Route: 042
     Dates: start: 20040426, end: 20040723

REACTIONS (4)
  - ANAEMIA [None]
  - ASTHENIA [None]
  - DIARRHOEA [None]
  - HYPERGLYCAEMIA [None]
